FAERS Safety Report 4475151-6 (Version None)
Quarter: 2004Q3

REPORT INFORMATION
  Report Type: 
  Country: None (occurrence: None)
  Receive Date: 20040923
  Receipt Date: 20040806
  Transmission Date: 20050211
  Serious: No
  Sender: FDA-Public Use
  Company Number: USA040670969

PATIENT
  Age: 56 Year
  Sex: Female
  Weight: 48 kg

DRUGS (6)
  1. FORTEO [Suspect]
     Indication: OSTEOPOROSIS
     Dosage: 20 UG DAY
     Dates: start: 20040201
  2. CALCIUM PLUS D [Concomitant]
  3. MULTI-VITAMIN [Concomitant]
  4. VIVELLE [Concomitant]
  5. VITAMIN E [Concomitant]
  6. ZETIA [Concomitant]

REACTIONS (1)
  - DEAFNESS [None]
